FAERS Safety Report 9801385 (Version 2)
Quarter: 2015Q1

REPORT INFORMATION
  Report Type: Spontaneous
  Country: US (occurrence: US)
  Receive Date: 20140107
  Receipt Date: 20150130
  Transmission Date: 20150721
  Serious: No
  Sender: FDA-Public Use
  Company Number: US-GLAXOSMITHKLINE-A1052674A

PATIENT

DRUGS (8)
  1. ALEVE [Concomitant]
     Active Substance: NAPROXEN SODIUM
  2. PREDNISONE. [Concomitant]
     Active Substance: PREDNISONE
  3. PLAQUENIL [Concomitant]
     Active Substance: HYDROXYCHLOROQUINE SULFATE
  4. BENADRYL [Concomitant]
     Active Substance: DIPHENHYDRAMINE HYDROCHLORIDE
  5. BENLYSTA [Suspect]
     Active Substance: BELIMUMAB
     Indication: SYSTEMIC LUPUS ERYTHEMATOSUS
     Dosage: 120 MG EVERY 28 DAYS
     Route: 042
     Dates: start: 20130604, end: 20140417
  6. NEURONTIN [Concomitant]
     Active Substance: GABAPENTIN
  7. TYLENOL [Concomitant]
     Active Substance: ACETAMINOPHEN
  8. SOLU-MEDROL [Concomitant]
     Active Substance: METHYLPREDNISOLONE SODIUM SUCCINATE

REACTIONS (7)
  - Rash [Unknown]
  - Ligament rupture [Unknown]
  - Peripheral swelling [Unknown]
  - Knee operation [Unknown]
  - Wound complication [Unknown]
  - Fatigue [Unknown]
  - Pain in extremity [Unknown]
